FAERS Safety Report 7828156-9 (Version None)
Quarter: 2011Q4

REPORT INFORMATION
  Report Type: 
  Country: None (occurrence: None)
  Receive Date: 20111020
  Receipt Date: 20111017
  Transmission Date: 20120403
  Serious: Yes (Death)
  Sender: FDA-Public Use
  Company Number: NL-ROXANE LABORATORIES, INC.-2011-RO-01480RO

PATIENT
  Age: 46 Year
  Sex: Male

DRUGS (3)
  1. AZATHIOPRINE [Suspect]
     Indication: COLITIS ULCERATIVE
     Dosage: 100 MG
  2. PREDNISONE [Suspect]
     Indication: COLITIS ULCERATIVE
  3. MESALAMINE [Suspect]
     Indication: COLITIS ULCERATIVE

REACTIONS (2)
  - DIFFUSE LARGE B-CELL LYMPHOMA [None]
  - EPSTEIN-BARR VIRUS TEST POSITIVE [None]
